FAERS Safety Report 4723325-9 (Version None)
Quarter: 2005Q3

REPORT INFORMATION
  Report Type: 
  Country: None (occurrence: None)
  Receive Date: 20050719
  Receipt Date: 20050228
  Transmission Date: 20060218
  Serious: Yes (Hospitalization)
  Sender: FDA-Public Use
  Company Number: 2005BI005025

PATIENT
  Sex: Female

DRUGS (2)
  1. AVONEX [Suspect]
     Indication: MULTIPLE SCLEROSIS
     Dosage: IM
     Route: 030
  2. NATALIZUMAB [Suspect]
     Indication: MULTIPLE SCLEROSIS
     Dosage: IV
     Route: 042

REACTIONS (10)
  - BACK PAIN [None]
  - CARDIAC FLUTTER [None]
  - COLONIC POLYP [None]
  - DEPRESSION [None]
  - ENDOCRINE DISORDER [None]
  - FALL [None]
  - MULTIPLE SCLEROSIS [None]
  - PITUITARY CYST [None]
  - PYREXIA [None]
  - THYROID DISORDER [None]
